FAERS Safety Report 5444848-3 (Version None)
Quarter: 2007Q3

REPORT INFORMATION
  Report Type: 
  Country: None (occurrence: None)
  Receive Date: 20070906
  Receipt Date: 20070404
  Transmission Date: 20080115
  Serious: No
  Sender: FDA-Public Use
  Company Number: A0645974A

PATIENT
  Age: 68 Year
  Sex: Female

DRUGS (4)
  1. REQUIP [Suspect]
     Indication: RESTLESS LEGS SYNDROME
     Dosage: .25MG TWICE PER DAY
     Route: 048
     Dates: start: 20070215
  2. NEXIUM [Concomitant]
  3. BONIVA [Concomitant]
  4. VITAMINS [Concomitant]

REACTIONS (4)
  - DRUG ADMINISTRATION ERROR [None]
  - DRUG INEFFECTIVE [None]
  - DYSPEPSIA [None]
  - INSOMNIA [None]
